FAERS Safety Report 4334198-0 (Version None)
Quarter: 2004Q2

REPORT INFORMATION
  Report Type: 
  Country: None (occurrence: None)
  Receive Date: 20040402
  Receipt Date: 20040319
  Transmission Date: 20050107
  Serious: Yes (Life-Threatening)
  Sender: FDA-Public Use
  Company Number: 205611

PATIENT
  Age: 35 Year
  Sex: Male
  Weight: 70 kg

DRUGS (1)
  1. MABTHERA(RITUXIMAB) CONC FOR SOLUTION FOR INFUSION [Suspect]
     Indication: LYMPHOMA
     Dosage: 375 MG/M2, SINGLE , INTRAVENOUS
     Route: 042
     Dates: start: 20030813, end: 20030813

REACTIONS (11)
  - ABSCESS [None]
  - BACTERIAL INFECTION [None]
  - BONE INFECTION [None]
  - DIALYSIS [None]
  - DISSEMINATED INTRAVASCULAR COAGULATION [None]
  - ESCHERICHIA INFECTION [None]
  - HYPOTENSION [None]
  - INTRAVASCULAR HAEMOLYSIS [None]
  - NEUTROPENIC SEPSIS [None]
  - OSTEONECROSIS [None]
  - RENAL FAILURE ACUTE [None]
